FAERS Safety Report 7153610-5 (Version None)
Quarter: 2010Q4

REPORT INFORMATION
  Report Type: 
  Country: None (occurrence: None)
  Receive Date: 20101213
  Receipt Date: 20101209
  Transmission Date: 20110411
  Serious: Yes (Death, Hospitalization)
  Sender: FDA-Public Use
  Company Number: ZA-BRISTOL-MYERS SQUIBB COMPANY-15389778

PATIENT
  Age: 65 Year
  Sex: Male

DRUGS (7)
  1. BLINDED: APIXABAN [Suspect]
     Indication: THROMBOSIS PROPHYLAXIS
     Dosage: INTERRUPTED ON 12NOV10
     Route: 048
     Dates: start: 20090430, end: 20101112
  2. WARFARIN SODIUM [Suspect]
     Indication: THROMBOSIS PROPHYLAXIS
     Dosage: INTERRUPTED ON 11NOV10
     Route: 048
     Dates: start: 20090430, end: 20101111
  3. BLINDED: PLACEBO [Suspect]
     Indication: THROMBOSIS PROPHYLAXIS
     Dosage: APIX ARM:INTER ON 12NOV10 WARF ARM:INTER ON 11NOV10 STOP DATES:APIX ARM(12NOV10)WARF ARM(11NOV10)
     Route: 048
     Dates: start: 20090430, end: 20101101
  4. METFORMIN HCL [Concomitant]
     Route: 048
     Dates: start: 20091001
  5. CINNARIZINE [Concomitant]
     Dates: start: 20100324
  6. PREXUM PLUS [Concomitant]
     Dates: start: 20100324
  7. CONCOR [Concomitant]
     Dates: start: 20100324

REACTIONS (2)
  - INTESTINAL OBSTRUCTION [None]
  - ORGAN FAILURE [None]
